FAERS Safety Report 18544131 (Version 1)
Quarter: 2020Q4

REPORT INFORMATION
  Report Type: Spontaneous
  Country: CN (occurrence: CN)
  Receive Date: 20201125
  Receipt Date: 20201125
  Transmission Date: 20210114
  Serious: Yes (Other)
  Sender: FDA-Public Use
  Company Number: CN-ROCHE-2716147

PATIENT
  Age: 44 Year
  Sex: Male

DRUGS (15)
  1. HERCEPTIN [Suspect]
     Active Substance: TRASTUZUMAB
     Indication: SIGNET-RING CELL CARCINOMA
  2. PACLITAXEL. [Concomitant]
     Active Substance: PACLITAXEL
     Dates: start: 20200503
  3. OXALIPLATIN. [Concomitant]
     Active Substance: OXALIPLATIN
     Dates: start: 20200503
  4. CALCIUM LEVOFOLINATE [Concomitant]
     Active Substance: LEVOLEUCOVORIN CALCIUM
     Indication: SIGNET-RING CELL CARCINOMA
     Dates: start: 20200503
  5. HERCEPTIN [Suspect]
     Active Substance: TRASTUZUMAB
     Indication: ADENOCARCINOMA
     Route: 065
     Dates: start: 20190904
  6. FLUOROURACIL. [Concomitant]
     Active Substance: FLUOROURACIL
     Indication: ADENOCARCINOMA
     Dates: start: 20200209
  7. CALCIUM LEVOFOLINATE [Concomitant]
     Active Substance: LEVOLEUCOVORIN CALCIUM
     Indication: ADENOCARCINOMA
     Dates: start: 20200416
  8. FLUOROURACIL. [Concomitant]
     Active Substance: FLUOROURACIL
     Indication: SIGNET-RING CELL CARCINOMA
     Dates: start: 20200416
  9. APATINIB [Concomitant]
     Active Substance: APATINIB
     Indication: ADENOCARCINOMA
     Dates: start: 20190904
  10. APATINIB [Concomitant]
     Active Substance: APATINIB
     Indication: SIGNET-RING CELL CARCINOMA
     Dates: start: 20200209
  11. OXALIPLATIN. [Concomitant]
     Active Substance: OXALIPLATIN
     Indication: SIGNET-RING CELL CARCINOMA
     Dates: start: 20200416
  12. FLUOROURACIL. [Concomitant]
     Active Substance: FLUOROURACIL
     Dates: start: 20200503
  13. PACLITAXEL. [Concomitant]
     Active Substance: PACLITAXEL
     Indication: SIGNET-RING CELL CARCINOMA
     Dates: start: 20200416
  14. OXALIPLATIN. [Concomitant]
     Active Substance: OXALIPLATIN
     Indication: ADENOCARCINOMA
     Dates: start: 20200209
  15. PACLITAXEL. [Concomitant]
     Active Substance: PACLITAXEL
     Indication: ADENOCARCINOMA
     Dates: start: 20200209

REACTIONS (6)
  - Encephalitis autoimmune [Unknown]
  - Hyperbilirubinaemia [Unknown]
  - Hepatic enzyme increased [Unknown]
  - Hepatitis B DNA increased [Unknown]
  - Marasmus [Unknown]
  - Myasthenia gravis [Unknown]

NARRATIVE: CASE EVENT DATE: 2020
